FAERS Safety Report 10467324 (Version 1)
Quarter: 2014Q3

REPORT INFORMATION
  Report Type: Spontaneous
  Country: US (occurrence: US)
  Receive Date: 20140922
  Receipt Date: 20140922
  Transmission Date: 20150326
  Serious: No
  Sender: FDA-Public Use
  Company Number: US-009507513-1409USA002787

PATIENT
  Age: 12 Year
  Sex: Male

DRUGS (1)
  1. CLARITIN REDITABS [Suspect]
     Active Substance: LORATADINE
     Indication: NASAL CONGESTION
     Dosage: UNK, UNKNOWN
     Route: 048

REACTIONS (3)
  - Therapeutic response changed [Unknown]
  - Drug effect delayed [Unknown]
  - Off label use [Unknown]
